FAERS Safety Report 7877158-5 (Version None)
Quarter: 2011Q4

REPORT INFORMATION
  Report Type: 
  Country: None (occurrence: None)
  Receive Date: 20111031
  Receipt Date: 20111021
  Transmission Date: 20120403
  Serious: Yes (Hospitalization)
  Sender: FDA-Public Use
  Company Number: US-BAYER-2011-055389

PATIENT
  Age: 23 Year
  Sex: Female
  Weight: 41 kg

DRUGS (1)
  1. YAZ [Suspect]
     Indication: CONTRACEPTION
     Dosage: UNK
     Route: 048
     Dates: start: 20070101, end: 20090101

REACTIONS (5)
  - APPARENT DEATH [None]
  - MYOCARDIAL INFARCTION [None]
  - LIVER INJURY [None]
  - PAIN [None]
  - INJURY [None]
